FAERS Safety Report 9629824 (Version 3)
Quarter: 2014Q4

REPORT INFORMATION
  Report Type: Spontaneous
  Country: US (occurrence: US)
  Receive Date: 20131017
  Receipt Date: 20141205
  Transmission Date: 20150529
  Serious: Yes (Life-Threatening, Hospitalization)
  Sender: FDA-Public Use
  Company Number: US-BRISTOL-MYERS SQUIBB COMPANY-19588359

PATIENT
  Age: 55 Year
  Sex: Female
  Weight: 176 kg

DRUGS (18)
  1. BYETTA [Suspect]
     Active Substance: EXENATIDE
     Route: 058
     Dates: start: 201206, end: 201212
  2. NEURONTIN [Concomitant]
     Active Substance: GABAPENTIN
     Route: 048
  3. MIRALAX [Concomitant]
     Active Substance: POLYETHYLENE GLYCOL 3350
  4. ATORVASTATIN [Concomitant]
     Active Substance: ATORVASTATIN
  5. ROXICET [Concomitant]
     Active Substance: ACETAMINOPHEN\OXYCODONE HYDROCHLORIDE
     Dosage: 1DF:5-325MG
     Route: 048
  6. METFORMIN HCL TABS 500MG [Concomitant]
     Active Substance: METFORMIN HYDROCHLORIDE
     Route: 048
  7. FERROUS SULFATE [Concomitant]
     Active Substance: FERROUS SULFATE\FERROUS SULFATE, DRIED
     Route: 048
  8. LASIX [Concomitant]
     Active Substance: FUROSEMIDE
  9. ZYRTEC [Concomitant]
     Active Substance: CETIRIZINE HYDROCHLORIDE
     Route: 048
  10. INSULIN LISPRO [Concomitant]
     Active Substance: INSULIN LISPRO
  11. MORPHINE [Concomitant]
     Active Substance: MORPHINE
  12. NEXIUM [Concomitant]
     Active Substance: ESOMEPRAZOLE MAGNESIUM
  13. AMLODIPINE [Concomitant]
     Active Substance: AMLODIPINE BESYLATE
  14. DOCUSATE SODIUM. [Concomitant]
     Active Substance: DOCUSATE SODIUM
     Route: 048
  15. JANUVIA [Suspect]
     Active Substance: SITAGLIPTIN PHOSPHATE
     Dates: start: 201201, end: 201206
  16. LANTUS [Concomitant]
     Active Substance: INSULIN GLARGINE
  17. COMBIVENT [Concomitant]
     Active Substance: ALBUTEROL SULFATE\IPRATROPIUM BROMIDE
     Route: 055
  18. LOSARTAN [Concomitant]
     Active Substance: LOSARTAN

REACTIONS (2)
  - Pancreatic carcinoma [Unknown]
  - Pancreatitis [Unknown]

NARRATIVE: CASE EVENT DATE: 2012
